FAERS Safety Report 21785446 (Version 1)
Quarter: 2022Q4

REPORT INFORMATION
  Report Type: Spontaneous
  Country: US (occurrence: US)
  Receive Date: 20221227
  Receipt Date: 20221227
  Transmission Date: 20230113
  Serious: Yes (Other)
  Sender: FDA-Public Use
  Company Number: US-IMMUNOCORE, LTD-2022-IMC-001309

PATIENT
  Age: 73 Year
  Sex: Female

DRUGS (5)
  1. KIMMTRAK [Suspect]
     Active Substance: TEBENTAFUSP-TEBN
     Indication: Uveal melanoma
     Dosage: 20 MICROGRAM
     Dates: start: 20220908
  2. KIMMTRAK [Suspect]
     Active Substance: TEBENTAFUSP-TEBN
     Dosage: 30 MICROGRAM
     Dates: start: 20220915
  3. KIMMTRAK [Suspect]
     Active Substance: TEBENTAFUSP-TEBN
     Dosage: 30 MICROGRAM
     Dates: start: 20220922
  4. KIMMTRAK [Suspect]
     Active Substance: TEBENTAFUSP-TEBN
     Dosage: UNK
     Dates: start: 20220928
  5. KIMMTRAK [Suspect]
     Active Substance: TEBENTAFUSP-TEBN
     Dosage: 68 MICROGRAM
     Dates: start: 20221202

REACTIONS (3)
  - Malignant neoplasm progression [Unknown]
  - Adverse drug reaction [Unknown]
  - Drug ineffective [Unknown]

NARRATIVE: CASE EVENT DATE: 20220915
